FAERS Safety Report 21582431 (Version 1)
Quarter: 2022Q4

REPORT INFORMATION
  Report Type: Report from Study
  Country: CO (occurrence: CO)
  Receive Date: 20221111
  Receipt Date: 20221111
  Transmission Date: 20230113
  Serious: Yes (Death, Hospitalization, Other)
  Sender: FDA-Public Use
  Company Number: CO-JNJFOC-20221002672

PATIENT
  Age: 89 Year
  Sex: Male
  Weight: 60 kg

DRUGS (9)
  1. ZYTIGA [Suspect]
     Active Substance: ABIRATERONE ACETATE
     Indication: Prostate cancer metastatic
     Dosage: LAST INTAKE OF MEDICATION WAS ON 28-SEP-2022.
     Route: 048
     Dates: start: 20220611, end: 20220928
  2. ZOLEDRONIC ACID [Suspect]
     Active Substance: ZOLEDRONIC ACID
  3. PREDNISOLONE [Concomitant]
     Active Substance: PREDNISOLONE
  4. RADIATION THERAPY [Concomitant]
     Active Substance: RADIATION THERAPY
  5. ACETAMINOPHEN\TRAMADOL [Concomitant]
     Active Substance: ACETAMINOPHEN\TRAMADOL
  6. ISOCLINE [Concomitant]
  7. ERGOCALCIFEROL [Concomitant]
     Active Substance: ERGOCALCIFEROL
  8. GELATIN [Concomitant]
     Active Substance: GELATIN
  9. TOLTERODINE [Concomitant]
     Active Substance: TOLTERODINE

REACTIONS (12)
  - Multiple organ dysfunction syndrome [Fatal]
  - Syncope [Unknown]
  - Muscular weakness [Unknown]
  - Urinary tract infection [Unknown]
  - Dysphagia [Unknown]
  - Peripheral swelling [Not Recovered/Not Resolved]
  - Vomiting [Not Recovered/Not Resolved]
  - Headache [Not Recovered/Not Resolved]
  - Nausea [Not Recovered/Not Resolved]
  - Lethargy [Not Recovered/Not Resolved]
  - Dry mouth [Not Recovered/Not Resolved]
  - Dry skin [Not Recovered/Not Resolved]

NARRATIVE: CASE EVENT DATE: 20220916
